FAERS Safety Report 6395442-1 (Version None)
Quarter: 2009Q4

REPORT INFORMATION
  Report Type: 
  Country: None (occurrence: None)
  Receive Date: 20091009
  Receipt Date: 20090925
  Transmission Date: 20100525
  Serious: Yes (Other)
  Sender: FDA-Public Use
  Company Number: CA-GENENTECH-291558

PATIENT
  Sex: Female
  Weight: 70 kg

DRUGS (2)
  1. OMALIZUMAB [Suspect]
     Indication: ASTHMA
     Dosage: 150 MG, UNK
     Route: 058
     Dates: start: 20050112
  2. OMALIZUMAB [Suspect]
     Dosage: 150 MG, 1/MONTH
     Route: 058
     Dates: start: 20051207

REACTIONS (6)
  - ASTHMA [None]
  - DYSPNOEA [None]
  - LARYNGITIS [None]
  - PAIN [None]
  - PYREXIA [None]
  - SINUSITIS [None]
